FAERS Safety Report 4301232-3 (Version None)
Quarter: 2004Q1

REPORT INFORMATION
  Report Type: 
  Country: None (occurrence: None)
  Receive Date: 20040218
  Receipt Date: 20031028
  Transmission Date: 20041129
  Serious: No
  Sender: FDA-Public Use
  Company Number: 2003-10-3134

PATIENT
  Sex: Female

DRUGS (2)
  1. PEG-INTRON [Suspect]
     Dosage: 1.5 MCG/KG
     Route: 058
  2. REBETOL [Suspect]
     Route: 048

REACTIONS (1)
  - ERYTHEMA [None]
